FAERS Safety Report 10345349 (Version 1)
Quarter: 2014Q3

REPORT INFORMATION
  Report Type: Spontaneous
  Country: US (occurrence: None)
  Receive Date: 20140724
  Receipt Date: 20140724
  Transmission Date: 20150326
  Serious: Yes (Disabling)
  Sender: FDA-Public Use
  Company Number: None

PATIENT
  Age: 66 Year
  Sex: Female
  Weight: 65.77 kg

DRUGS (9)
  1. VITAMINS C [Concomitant]
  2. PRAVASTATIN [Suspect]
     Active Substance: PRAVASTATIN\PRAVASTATIN SODIUM
     Indication: BLOOD CHOLESTEROL INCREASED
     Dosage: 20 MG 30 ONCE DAILY IN EVENING BY MOUTH
     Route: 048
     Dates: start: 20120901, end: 20140716
  3. PROGESTERONE. [Concomitant]
     Active Substance: PROGESTERONE
  4. ESTRADIOL. [Concomitant]
     Active Substance: ESTRADIOL
  5. VITAMIN B12 [Concomitant]
     Active Substance: CYANOCOBALAMIN
  6. TYLENOL [Concomitant]
     Active Substance: ACETAMINOPHEN
  7. ADVIL [Concomitant]
     Active Substance: IBUPROFEN
  8. ASPIRIN. [Concomitant]
     Active Substance: ASPIRIN
  9. VITAMIN D [Concomitant]
     Active Substance: CHOLECALCIFEROL

REACTIONS (12)
  - Movement disorder [None]
  - Joint stiffness [None]
  - Bone pain [None]
  - Asthenia [None]
  - Myalgia [None]
  - Pain [None]
  - Muscle atrophy [None]
  - Cough [None]
  - Arthralgia [None]
  - No therapeutic response [None]
  - Joint swelling [None]
  - Urinary tract disorder [None]

NARRATIVE: CASE EVENT DATE: 201307
